FAERS Safety Report 4491581-0 (Version None)
Quarter: 2004Q4

REPORT INFORMATION
  Report Type: 
  Country: None (occurrence: None)
  Receive Date: 20041101
  Receipt Date: 20041018
  Transmission Date: 20050328
  Serious: Yes (Death, Other)
  Sender: FDA-Public Use
  Company Number: 2004081134

PATIENT
  Age: 80 Year
  Sex: Male

DRUGS (7)
  1. NEURONTIN [Suspect]
     Indication: BACK PAIN
     Dosage: ORAL
     Route: 048
  2. FELDENE [Suspect]
     Indication: ILL-DEFINED DISORDER
  3. CELECOXIB (CELECOXIB) [Suspect]
     Indication: BACK PAIN
     Dosage: ORAL
     Route: 048
  4. FLUOXETINE HYDROCHLORIDE [Suspect]
     Indication: DEPRESSION
  5. IRBESARTAN [Suspect]
     Indication: HYPERTENSION
  6. MORPHINE SULFATE [Suspect]
     Indication: ILL-DEFINED DISORDER
  7. PROCHLORPERAZINE [Concomitant]

REACTIONS (14)
  - ALKALOSIS [None]
  - BLOOD CREATININE INCREASED [None]
  - BLOOD POTASSIUM DECREASED [None]
  - BLOOD SODIUM DECREASED [None]
  - BODY TEMPERATURE INCREASED [None]
  - CARDIOMEGALY [None]
  - ELECTROLYTE IMBALANCE [None]
  - MYOCARDIAL INFARCTION [None]
  - MYOCARDIAL ISCHAEMIA [None]
  - NEUTROPHIL COUNT INCREASED [None]
  - PULMONARY OEDEMA [None]
  - VENTRICULAR FIBRILLATION [None]
  - VOMITING [None]
  - WHITE BLOOD CELL COUNT INCREASED [None]
